FAERS Safety Report 4274123-4 (Version None)
Quarter: 2004Q1

REPORT INFORMATION
  Report Type: 
  Country: None (occurrence: None)
  Receive Date: 20040120
  Receipt Date: 20040113
  Transmission Date: 20041129
  Serious: Yes (Hospitalization)
  Sender: FDA-Public Use
  Company Number: DE-GLAXOSMITHKLINE-D0042875A

PATIENT
  Age: 35 Year
  Sex: Female
  Weight: 52 kg

DRUGS (15)
  1. AUGMENTIN '125' [Suspect]
     Indication: INFECTION
     Dosage: 2.2G THREE TIMES PER DAY
     Route: 042
     Dates: start: 20011121, end: 20011123
  2. LAMICTAL [Suspect]
     Indication: EPILEPSY
     Dosage: 12.5MG VARIABLE DOSE
     Route: 048
     Dates: start: 20011112, end: 20011124
  3. RANITIDINE [Suspect]
     Indication: PROPHYLAXIS
     Dosage: 100MG PER DAY
     Route: 042
     Dates: start: 20011123, end: 20011126
  4. NOVALGIN [Suspect]
     Indication: PAIN
     Route: 042
     Dates: start: 20011128, end: 20011202
  5. MIDAZOLAM HCL [Suspect]
     Indication: PAIN
     Route: 042
     Dates: start: 20011114, end: 20011207
  6. COTRIM [Suspect]
     Indication: INFECTION
     Dosage: 960MG TWICE PER DAY
     Route: 042
     Dates: start: 20011116, end: 20011120
  7. CIPROFLOXACIN HCL [Suspect]
     Indication: INFECTION
     Dosage: 200MG TWICE PER DAY
     Route: 042
     Dates: start: 20011121, end: 20011123
  8. CLAFORAN [Suspect]
     Indication: INFECTION
     Dosage: 2G THREE TIMES PER DAY
     Route: 042
     Dates: start: 20011130, end: 20011201
  9. MULTIPLE MEDICATION [Suspect]
     Route: 065
  10. XANEF [Concomitant]
     Indication: CARDIAC FAILURE
     Dosage: 2.5MG PER DAY
     Route: 048
     Dates: end: 20011202
  11. MULTIVITAMIN [Concomitant]
     Indication: PARENTERAL NUTRITION
     Dosage: 1AMP AS REQUIRED
     Route: 042
     Dates: start: 20011121, end: 20011205
  12. NYSTATIN [Concomitant]
     Indication: CANDIDIASIS
     Route: 061
     Dates: end: 20011202
  13. MULTIVITAMIN [Concomitant]
     Indication: HYPOVITAMINOSIS
     Dosage: 1AMP PER DAY
     Route: 042
     Dates: end: 20011205
  14. SOLU-DECORTIN-H [Concomitant]
     Indication: COLITIS ULCERATIVE
     Route: 042
     Dates: end: 20011205
  15. MULTIPLE MEDICATION [Concomitant]
     Route: 065

REACTIONS (13)
  - ANGIOPATHY [None]
  - BLISTER [None]
  - ERYTHEMA [None]
  - EXANTHEM [None]
  - EYE REDNESS [None]
  - LIP EROSION [None]
  - MUCOSAL EROSION [None]
  - NIKOLSKY'S SIGN [None]
  - RASH MACULAR [None]
  - RASH MORBILLIFORM [None]
  - SEPSIS [None]
  - STEVENS-JOHNSON SYNDROME [None]
  - TOXIC EPIDERMAL NECROLYSIS [None]
